FAERS Safety Report 24142782 (Version 1)
Quarter: 2024Q3

REPORT INFORMATION
  Report Type: Spontaneous
  Country: US (occurrence: None)
  Receive Date: 20240725
  Receipt Date: 20240725
  Transmission Date: 20241016
  Serious: No
  Sender: Public
  Company Number: None

PATIENT
  Age: 68 Year
  Sex: Female
  Weight: 58.97 kg

DRUGS (1)
  1. SKYRIZI [Suspect]
     Active Substance: RISANKIZUMAB-RZAA
     Indication: Psoriasis
     Dosage: OTHER FREQUENCY : AT WEEK 0 AND WEEK 4;?
     Route: 058
     Dates: start: 202407

REACTIONS (5)
  - Rash [None]
  - Skin infection [None]
  - Skin burning sensation [None]
  - Skin haemorrhage [None]
  - Skin exfoliation [None]
